FAERS Safety Report 13485663 (Version 2)
Quarter: 2017Q3

REPORT INFORMATION
  Report Type: Spontaneous
  Country: GB (occurrence: GB)
  Receive Date: 20170426
  Receipt Date: 20170703
  Transmission Date: 20171127
  Serious: Yes (Death)
  Sender: FDA-Public Use
  Company Number: GB-TEVA-761216ACC

PATIENT
  Age: 35 Year
  Sex: Male
  Weight: 101 kg

DRUGS (6)
  1. RIBAVIRIN. [Suspect]
     Active Substance: RIBAVIRIN
     Indication: HEPATITIS C
     Dosage: 1200 MILLIGRAM DAILY;
     Route: 048
     Dates: start: 20170224, end: 20170310
  2. LANSOPRAZOLE. [Suspect]
     Active Substance: LANSOPRAZOLE
     Indication: PROPHYLAXIS
     Dosage: 15 MILLIGRAM DAILY;
     Route: 048
     Dates: end: 20170310
  3. THIAMINE. [Suspect]
     Active Substance: THIAMINE
     Indication: VITAMIN SUPPLEMENTATION
     Dosage: 100 MILLIGRAM DAILY;
     Route: 048
     Dates: end: 20170310
  4. VIEKIRAX [Suspect]
     Active Substance: OMBITASVIR\PARITAPREVIR\RITONAVIR
     Indication: HEPATITIS C
     Dosage: 2 DOSAGE FORMS DAILY;
     Route: 048
     Dates: start: 20170224, end: 20170310
  5. AMLODIPINE [Suspect]
     Active Substance: AMLODIPINE BESYLATE
     Indication: ESSENTIAL HYPERTENSION
     Dosage: 5 MILLIGRAM DAILY;
     Route: 048
     Dates: end: 20170310
  6. EXVIERA [Suspect]
     Active Substance: DASABUVIR
     Indication: HEPATITIS C
     Dosage: 500 MILLIGRAM DAILY;
     Route: 048
     Dates: start: 20170224, end: 20170310

REACTIONS (1)
  - Gastric varices haemorrhage [Fatal]

NARRATIVE: CASE EVENT DATE: 20170316
